FAERS Safety Report 24037677 (Version 1)
Quarter: 2024Q3

REPORT INFORMATION
  Report Type: Spontaneous
  Country: IT (occurrence: IT)
  Receive Date: 20240702
  Receipt Date: 20240702
  Transmission Date: 20241017
  Serious: Yes (Other)
  Sender: STRIDES
  Company Number: IT-STRIDES ARCOLAB LIMITED-2024SP007687

PATIENT
  Age: 52 Year
  Sex: Male

DRUGS (3)
  1. PREDNISOLONE [Suspect]
     Active Substance: PREDNISOLONE
     Indication: Herpes zoster oticus
     Dosage: 120 MILLIGRAM
     Route: 065
  2. PREDNISOLONE [Suspect]
     Active Substance: PREDNISOLONE
     Dosage: UNK (INITIAL DOSE WAS TAPERED OVER 2-WEEKS)
     Route: 065
  3. VALACYCLOVIR HYDROCHLORIDE [Suspect]
     Active Substance: VALACYCLOVIR HYDROCHLORIDE
     Indication: Herpes zoster oticus
     Dosage: 1 GRAM, TID (RECEIVED HIGH DOSE OF VALACICLOVIR THRICE A DAY FOR A WEEK)
     Route: 065

REACTIONS (1)
  - Therapy non-responder [Unknown]
